FAERS Safety Report 6727437-X (Version None)
Quarter: 2010Q2

REPORT INFORMATION
  Report Type: 
  Country: None (occurrence: None)
  Receive Date: 20100517
  Receipt Date: 20100510
  Transmission Date: 20101027
  Serious: Yes (Other)
  Sender: FDA-Public Use
  Company Number: US-SANOFI-AVENTIS-2010SA012445

PATIENT
  Age: 74 Year
  Sex: Female
  Weight: 62 kg

DRUGS (15)
  1. LANTUS [Suspect]
     Dosage: DOSE TO BE INCREASED TO 30 U ; 04MAR-2010 DOSE:30 UNIT(S)
     Route: 058
  2. OPTICLICK [Suspect]
  3. BETA BLOCKING AGENTS [Concomitant]
  4. VITAMINS [Concomitant]
  5. BENAZEPRIL HYDROCHLORIDE [Concomitant]
     Route: 065
  6. METOPROLOL TARTRATE [Concomitant]
     Route: 065
  7. GLIPIZIDE [Concomitant]
     Route: 065
  8. AMLODIPINE [Concomitant]
     Route: 065
  9. SIMVASTATIN [Concomitant]
     Route: 065
  10. ASPIRIN [Concomitant]
     Route: 065
  11. CALCIUM [Concomitant]
     Route: 065
  12. FISH OIL [Concomitant]
     Route: 065
  13. NIACIN [Concomitant]
     Route: 065
  14. VITAMIN C [Concomitant]
     Route: 065
  15. OMEPRAZOLE [Concomitant]
     Route: 065

REACTIONS (3)
  - BRAIN NEOPLASM MALIGNANT [None]
  - INJECTION SITE PAIN [None]
  - MEMORY IMPAIRMENT [None]
